FAERS Safety Report 18120279 (Version 1)
Quarter: 2020Q3

REPORT INFORMATION
  Report Type: Spontaneous
  Country: DK (occurrence: DK)
  Receive Date: 20200806
  Receipt Date: 20200806
  Transmission Date: 20201103
  Serious: Yes (Other)
  Sender: FDA-Public Use
  Company Number: DK-AMERICAN REGENT INC-2020001600

PATIENT
  Age: 27 Year
  Sex: Female
  Weight: 98 kg

DRUGS (1)
  1. FERINJECT [Suspect]
     Active Substance: FERRIC CARBOXYMALTOSE
     Indication: BLOOD IRON DECREASED
     Dosage: 1 DOSAGE FORM, 1 IN 1 TOTAL
     Route: 042
     Dates: start: 20200710, end: 20200710

REACTIONS (6)
  - Feeling hot [Recovered/Resolved]
  - Back pain [Recovered/Resolved]
  - Seizure [Recovered/Resolved]
  - Dyspnoea [Recovered/Resolved]
  - Uterine spasm [Recovered/Resolved]
  - Maternal exposure during pregnancy [Unknown]

NARRATIVE: CASE EVENT DATE: 20200710
